FAERS Safety Report 11532490 (Version 2)
Quarter: 2016Q1

REPORT INFORMATION
  Report Type: Spontaneous
  Country: US (occurrence: US)
  Receive Date: 20150921
  Receipt Date: 20160105
  Transmission Date: 20160525
  Serious: No
  Sender: FDA-Public Use
  Company Number: US-009507513-1509USA007737

PATIENT
  Sex: Female
  Weight: 68.27 kg

DRUGS (6)
  1. MINOCYCLINE [Concomitant]
     Active Substance: MINOCYCLINE\MINOCYCLINE HYDROCHLORIDE
  2. PROAIR HFA [Concomitant]
     Active Substance: ALBUTEROL SULFATE
  3. ASMANEX [Suspect]
     Active Substance: MOMETASONE FUROATE
     Dosage: UNK
  4. ESTRADIOL. [Concomitant]
     Active Substance: ESTRADIOL
  5. VITAMINS (UNSPECIFIED) [Concomitant]
     Active Substance: VITAMINS
  6. ASMANEX [Suspect]
     Active Substance: MOMETASONE FUROATE
     Indication: ASTHMA
     Dosage: 220MCG / 1 INHALATION AT NIGHT
     Route: 055

REACTIONS (6)
  - Chest discomfort [Recovered/Resolved]
  - Dyspnoea [Not Recovered/Not Resolved]
  - Drug dose omission [Unknown]
  - Dyspnoea [Recovered/Resolved]
  - Tenderness [Not Recovered/Not Resolved]
  - Product quality issue [Unknown]
